FAERS Safety Report 13298264 (Version 1)
Quarter: 2017Q1

REPORT INFORMATION
  Report Type: Spontaneous
  Country: US (occurrence: US)
  Receive Date: 20170306
  Receipt Date: 20170306
  Transmission Date: 20170428
  Serious: No
  Sender: FDA-Public Use
  Company Number: US-TEVA-729994ACC

PATIENT
  Sex: Female
  Weight: 61.22 kg

DRUGS (1)
  1. MAXIMUM STRENGTH MUCUS-DM [Suspect]
     Active Substance: DEXTROMETHORPHAN\GUAIFENESIN
     Indication: COUGH
     Dosage: 1 DF = 1200MG GUAIFENESIN + 60 MG DEXTROMETHORPHAN HYDROBROMIDE
     Route: 048
     Dates: start: 20161231, end: 20170103

REACTIONS (2)
  - Drug ineffective [Unknown]
  - Cough [Unknown]
